FAERS Safety Report 22658370 (Version 5)
Quarter: 2024Q1

REPORT INFORMATION
  Report Type: Spontaneous
  Country: US (occurrence: US)
  Receive Date: 20230630
  Receipt Date: 20240223
  Transmission Date: 20240409
  Serious: Yes (Other)
  Sender: FDA-Public Use
  Company Number: US-PFIZER INC-PV202300112018

PATIENT
  Age: 78 Year
  Sex: Female
  Weight: 83.46 kg

DRUGS (2)
  1. IBRANCE [Suspect]
     Active Substance: PALBOCICLIB
     Indication: Breast cancer female
     Dosage: 125 MG
  2. IBRANCE [Suspect]
     Active Substance: PALBOCICLIB
     Dosage: (1 TAB DAILY FOR 21 DAYS ON AND 7 DAYS OFF)
     Route: 048

REACTIONS (3)
  - Haemorrhage [Unknown]
  - Neoplasm progression [Unknown]
  - Diarrhoea [Unknown]
